FAERS Safety Report 4719864-7 (Version None)
Quarter: 2005Q3

REPORT INFORMATION
  Report Type: 
  Country: None (occurrence: None)
  Receive Date: 20050721
  Receipt Date: 20041207
  Transmission Date: 20060218
  Serious: Yes (Other)
  Sender: FDA-Public Use
  Company Number: US-GLAXOSMITHKLINE-A0537480A

PATIENT
  Sex: Male

DRUGS (10)
  1. AVANDIA [Suspect]
     Dosage: 4MG PER DAY
     Route: 048
     Dates: start: 20010918, end: 20011129
  2. AMARYL [Concomitant]
     Indication: DRUG USE FOR UNKNOWN INDICATION
  3. GLUCOPHAGE [Concomitant]
     Indication: DRUG USE FOR UNKNOWN INDICATION
  4. LOPID [Concomitant]
     Indication: DRUG USE FOR UNKNOWN INDICATION
  5. VIAGRA [Concomitant]
     Indication: DRUG USE FOR UNKNOWN INDICATION
  6. CELEXA [Concomitant]
     Indication: DRUG USE FOR UNKNOWN INDICATION
  7. DIOVAN [Concomitant]
     Indication: DRUG USE FOR UNKNOWN INDICATION
  8. PAXIL [Concomitant]
     Indication: DRUG USE FOR UNKNOWN INDICATION
  9. VANCOMYCIN [Concomitant]
     Indication: CELLULITIS
  10. TIMENTIN [Concomitant]
     Indication: CELLULITIS

REACTIONS (1)
  - CARDIAC FAILURE CONGESTIVE [None]
